FAERS Safety Report 13984244 (Version 2)
Quarter: 2018Q1

REPORT INFORMATION
  Report Type: Spontaneous
  Country: US (occurrence: US)
  Receive Date: 20170918
  Receipt Date: 20180220
  Transmission Date: 20180508
  Serious: Yes (Hospitalization, Other)
  Sender: FDA-Public Use
  Company Number: US-PFIZER INC-2017397249

PATIENT
  Age: 69 Year
  Sex: Female
  Weight: 81.63 kg

DRUGS (5)
  1. SOMAVERT [Suspect]
     Active Substance: PEGVISOMANT
     Indication: ACROMEGALY
     Dosage: 20 MG, UNK
  2. SOMAVERT [Suspect]
     Active Substance: PEGVISOMANT
     Dosage: 10 MG, 1X/DAY
  3. LEVOTHYROXINE SODIUM. [Concomitant]
     Active Substance: LEVOTHYROXINE SODIUM
     Indication: THYROID DISORDER
     Dosage: 112 UG, DAILY
     Route: 048
  4. INSULIN [Concomitant]
     Active Substance: INSULIN NOS
     Dosage: UNK
  5. SOMAVERT [Suspect]
     Active Substance: PEGVISOMANT
     Indication: NEOPLASM
     Dosage: 10 MG, 1X/DAY

REACTIONS (2)
  - Drug dose omission [Unknown]
  - Thyroid cancer [Recovered/Resolved]

NARRATIVE: CASE EVENT DATE: 201707
